FAERS Safety Report 8506071-5 (Version None)
Quarter: 2012Q3

REPORT INFORMATION
  Report Type: 
  Country: None (occurrence: None)
  Receive Date: 20120712
  Receipt Date: 20120703
  Transmission Date: 20120928
  Serious: Yes (Other)
  Sender: FDA-Public Use
  Company Number: PL-ASTRAZENECA-2012SE45347

PATIENT
  Age: 40 Year
  Sex: Female

DRUGS (1)
  1. SYMBICORT [Suspect]
     Dosage: 320 MCG, TWO TIMES A DAY
     Route: 055

REACTIONS (4)
  - DYSPHAGIA [None]
  - LARYNGEAL OEDEMA [None]
  - HYPOAESTHESIA ORAL [None]
  - HYPERSENSITIVITY [None]
